FAERS Safety Report 8760638 (Version 2)
Quarter: 2012Q4

REPORT INFORMATION
  Report Type: Spontaneous
  Country: FR (occurrence: None)
  Receive Date: 20120822
  Receipt Date: 20120827
  Transmission Date: 20130627
  Serious: Yes (Death, Other)
  Sender: FDA-Public Use
  Company Number: 2012P1054130

PATIENT
  Age: 84 Year
  Sex: Female

DRUGS (5)
  1. DIGOXIN [Suspect]
     Indication: ARRHYTHMIA
     Route: 042
     Dates: start: 20120708, end: 20120708
  2. RYTHMOL [Suspect]
     Indication: HYPERTENSION
     Route: 048
     Dates: start: 20120712, end: 20120712
  3. ISOPTIN ER [Suspect]
     Route: 048
     Dates: start: 20120712, end: 20120712
  4. CORDARONE [Suspect]
     Indication: ATRIAL FIBRILLATION
     Route: 042
     Dates: start: 20120707, end: 20120707
  5. CORDARONE [Suspect]
     Indication: ATRIAL FIBRILLATION
     Route: 042
     Dates: start: 20120708, end: 20120712

REACTIONS (11)
  - Somnolence [None]
  - Shock [None]
  - Cardiac tamponade [None]
  - Haemodynamic instability [None]
  - Neurological decompensation [None]
  - Renal failure [None]
  - Hepatic function abnormal [None]
  - Lung disorder [None]
  - Staphylococcal sepsis [None]
  - Enterococcal sepsis [None]
  - Drug interaction [None]
